FAERS Safety Report 5305971-7 (Version None)
Quarter: 2007Q2

REPORT INFORMATION
  Report Type: 
  Country: None (occurrence: None)
  Receive Date: 20070424
  Receipt Date: 20070419
  Transmission Date: 20071010
  Serious: Yes (Other)
  Sender: FDA-Public Use
  Company Number: US-MERCK-0702USA02932

PATIENT
  Age: 43 Year
  Sex: Male
  Weight: 81 kg

DRUGS (3)
  1. PROPECIA [Suspect]
     Indication: ALOPECIA
     Route: 048
     Dates: start: 20000101, end: 20070301
  2. CLARINEX [Concomitant]
     Route: 065
  3. NASONEX [Concomitant]
     Route: 065

REACTIONS (2)
  - ABDOMINAL PAIN [None]
  - INGUINAL HERNIA [None]
